FAERS Safety Report 9174642 (Version 1)
Quarter: 2013Q1

REPORT INFORMATION
  Report Type: Spontaneous
  Country: SE (occurrence: None)
  Receive Date: 20130315
  Receipt Date: 20130315
  Transmission Date: 20140127
  Serious: No
  Sender: FDA-Public Use
  Company Number: 1303SWE004368

PATIENT
  Sex: Female

DRUGS (1)
  1. CEDAX [Suspect]
     Indication: URINARY TRACT INFECTION
     Route: 048
     Dates: start: 20130305

REACTIONS (2)
  - Incorrect storage of drug [None]
  - Poor quality drug administered [None]
